FAERS Safety Report 5488211-8 (Version None)
Quarter: 2007Q3

REPORT INFORMATION
  Report Type: 
  Country: None (occurrence: None)
  Receive Date: 20070926
  Receipt Date: 20070829
  Transmission Date: 20080115
  Serious: No
  Sender: FDA-Public Use
  Company Number: HQWYE980004SEP07

PATIENT
  Age: 65 Year
  Sex: Female
  Weight: 70.82 kg

DRUGS (4)
  1. TORISEL [Suspect]
     Indication: RENAL CELL CARCINOMA STAGE UNSPECIFIED
     Dosage: 25 MG 1X PER 1 WK, INTRAVENOUS
     Route: 042
     Dates: start: 20070801
  2. CRESTOR [Concomitant]
  3. ACTOS [Concomitant]
  4. NORVASC [Concomitant]

REACTIONS (3)
  - HEADACHE [None]
  - HYPERGLYCAEMIA [None]
  - SCLERITIS [None]
